FAERS Safety Report 6173774-X (Version None)
Quarter: 2009Q2

REPORT INFORMATION
  Report Type: 
  Country: None (occurrence: None)
  Receive Date: 20090429
  Receipt Date: 20090429
  Transmission Date: 20091009
  Serious: No
  Sender: FDA-Public Use
  Company Number: None

PATIENT
  Sex: Female
  Weight: 88.4514 kg

DRUGS (1)
  1. DIGOXIN [Suspect]
     Indication: CARDIAC DISORDER
     Dosage: 1-2 TB DAILY
     Dates: start: 20081001, end: 20081031

REACTIONS (2)
  - CEREBROVASCULAR ACCIDENT [None]
  - PRODUCT SUBSTITUTION ISSUE [None]
